FAERS Safety Report 6383699-2 (Version None)
Quarter: 2009Q4

REPORT INFORMATION
  Report Type: 
  Country: None (occurrence: None)
  Receive Date: 20091001
  Receipt Date: 20090918
  Transmission Date: 20100525
  Serious: Yes (Death)
  Sender: FDA-Public Use
  Company Number: PH-PFIZER INC-2007008174

PATIENT
  Sex: Male
  Weight: 55 kg

DRUGS (9)
  1. CEFOPERAZONE SODIUM, SULBACTAM SODIUM [Suspect]
     Indication: GASTROINTESTINAL INFECTION
     Dosage: 1.5 G, 3X/DAY
     Dates: start: 20061201, end: 20061210
  2. CEFOPERAZONE SODIUM, SULBACTAM SODIUM [Suspect]
     Indication: INTESTINAL OBSTRUCTION
  3. CIPROFLAXACIN [Concomitant]
  4. STREPTOMYCIN [Concomitant]
  5. HYDROCORTISONE [Concomitant]
  6. BERODUAL [Concomitant]
  7. ISOPTIN [Concomitant]
  8. IMDUR [Concomitant]
  9. LIPITOR [Concomitant]

REACTIONS (2)
  - INTESTINAL OBSTRUCTION [None]
  - SEPSIS [None]
